FAERS Safety Report 5411939-2 (Version None)
Quarter: 2007Q3

REPORT INFORMATION
  Report Type: 
  Country: None (occurrence: None)
  Receive Date: 20070810
  Receipt Date: 20070810
  Transmission Date: 20080115
  Serious: Yes (Hospitalization)
  Sender: FDA-Public Use
  Company Number: None

PATIENT
  Age: 34 Year
  Sex: Male

DRUGS (1)
  1. IMMUNE GLOBULIN (HUMAN) [Suspect]
     Indication: TOXIC EPIDERMAL NECROLYSIS
     Dosage: 65GM EVERY DAY IV
     Route: 042
     Dates: start: 20070725, end: 20070727

REACTIONS (1)
  - HAEMOLYTIC ANAEMIA [None]
